FAERS Safety Report 9489456 (Version 1)
Quarter: 2013Q3

REPORT INFORMATION
  Report Type: Spontaneous
  Country: US (occurrence: US)
  Receive Date: 20130829
  Receipt Date: 20130829
  Transmission Date: 20140515
  Serious: Yes (Hospitalization, Other)
  Sender: FDA-Public Use
  Company Number: PHHY2013US091395

PATIENT
  Sex: Male

DRUGS (3)
  1. IRINOTECAN [Suspect]
     Indication: ALVEOLAR RHABDOMYOSARCOMA
     Dosage: 30 MG/M2, UNK
     Route: 042
  2. VINCRISTINE [Suspect]
     Indication: ALVEOLAR RHABDOMYOSARCOMA
     Dosage: 1.5 MG/M2, UNK
     Route: 042
  3. TEMOZOLOMIDE [Suspect]
     Indication: ALVEOLAR RHABDOMYOSARCOMA
     Dosage: 100 MG/M2, UNK
     Route: 048

REACTIONS (3)
  - Chills [Unknown]
  - Pyrexia [Unknown]
  - Neuropathy peripheral [Recovering/Resolving]
